FAERS Safety Report 20769269 (Version 10)
Quarter: 2022Q2

REPORT INFORMATION
  Report Type: Report from Study
  Country: ES (occurrence: None)
  Receive Date: 20220429
  Receipt Date: 20220624
  Transmission Date: 20220720
  Serious: Yes (Death, Hospitalization)
  Sender: FDA-Public Use
  Company Number: ES-Eisai Medical Research-EC-2022-113830

PATIENT
  Age: 75 Year
  Sex: Female
  Weight: 87.4 kg

DRUGS (23)
  1. LENVATINIB [Suspect]
     Active Substance: LENVATINIB
     Indication: Endometrial cancer
     Dosage: STARTING DOSE 20 MG, FLUCTUATED DOSAGE
     Route: 048
     Dates: start: 20220120, end: 20220421
  2. LENVATINIB [Suspect]
     Active Substance: LENVATINIB
     Route: 048
     Dates: start: 20220422, end: 20220422
  3. VIBOSTOLIMAB [Suspect]
     Active Substance: VIBOSTOLIMAB
     Indication: Endometrial cancer
     Dosage: MK-7684A (VIBOSTOLIMAB (MK-7684) 200 MG + PEMBROLIZUMAB (MK-3475) 200 MG)
     Route: 042
     Dates: start: 20220120, end: 20220323
  4. VIBOSTOLIMAB [Suspect]
     Active Substance: VIBOSTOLIMAB
     Dosage: MK-7684A (VIBOSTOLIMAB (MK-7684) 200 MG + PEMBROLIZUMAB (MK-3475) 200 MG)
     Route: 042
     Dates: start: 20220413, end: 20220413
  5. BISOPROLOL FUMARATE [Concomitant]
     Active Substance: BISOPROLOL FUMARATE
     Dates: start: 20210101
  6. IRBESARTAN [Concomitant]
     Active Substance: IRBESARTAN
     Dates: start: 20210101
  7. VILDAGLIPTIN [Concomitant]
     Active Substance: VILDAGLIPTIN
     Dates: start: 20210101
  8. ASPIRIN [Concomitant]
     Active Substance: ASPIRIN
     Dates: start: 20210101
  9. HYDROCHLOROTHIAZIDE [Concomitant]
     Active Substance: HYDROCHLOROTHIAZIDE
     Dates: start: 20210101
  10. METFORMIN [Concomitant]
     Active Substance: METFORMIN HYDROCHLORIDE
     Dates: start: 20210101
  11. OMEPRAZOLE [Concomitant]
     Active Substance: OMEPRAZOLE
     Dates: start: 20211227
  12. DIPYRONE [Concomitant]
     Active Substance: DIPYRONE
     Dates: start: 20211227
  13. FERROUS SULFATE [Concomitant]
     Active Substance: FERROUS SULFATE
     Dates: start: 20211227
  14. OXYCODONE HYDROCHLORIDE [Concomitant]
     Active Substance: OXYCODONE HYDROCHLORIDE
     Dates: start: 20220126
  15. AMLODIPINE [Concomitant]
     Active Substance: AMLODIPINE BESYLATE
     Dates: start: 20220202
  16. HYDROXYZINE [Concomitant]
     Active Substance: HYDROXYZINE HYDROCHLORIDE
     Dates: start: 20220302, end: 20220422
  17. DEXAMETHASONE [Concomitant]
     Active Substance: DEXAMETHASONE
     Dates: start: 20220302, end: 20220422
  18. CEFIXIME [Concomitant]
     Active Substance: CEFIXIME
     Dates: start: 20220320
  19. PREDNICARBATE [Concomitant]
     Active Substance: PREDNICARBATE
     Dates: start: 20220302, end: 20220422
  20. NISTATIN [Concomitant]
     Active Substance: NYSTATIN
     Dates: start: 20220302, end: 20220422
  21. LIDOCAINE [Concomitant]
     Active Substance: LIDOCAINE
     Dates: start: 20220209, end: 20220422
  22. PEMBROLIZUMAB [Suspect]
     Active Substance: PEMBROLIZUMAB
     Dates: start: 20220120
  23. PEMBROLIZUMAB [Suspect]
     Active Substance: PEMBROLIZUMAB
     Dates: start: 20220413

REACTIONS (1)
  - Malignant neoplasm progression [Fatal]

NARRATIVE: CASE EVENT DATE: 20220422
